FAERS Safety Report 8393004 (Version 2)
Quarter: 2014Q2

REPORT INFORMATION
  Report Type: Spontaneous
  Country: ES (occurrence: ES)
  Receive Date: 20120207
  Receipt Date: 20140619
  Transmission Date: 20141212
  Serious: Yes (Other)
  Sender: FDA-Public Use
  Company Number: ES-RANBAXY-2012R1-52198

PATIENT
  Age: 65 Year
  Sex: Female

DRUGS (1)
  1. NAPROXEN [Suspect]
     Indication: MUSCULOSKELETAL PAIN
     Dosage: 500 MG, DAILY
     Route: 065

REACTIONS (1)
  - Photosensitivity reaction [Recovered/Resolved]
